FAERS Safety Report 10620134 (Version 1)
Quarter: 2014Q4

REPORT INFORMATION
  Report Type: Spontaneous
  Country: US (occurrence: None)
  Receive Date: 20141201
  Receipt Date: 20141201
  Transmission Date: 20150529
  Serious: Yes (Other)
  Sender: FDA-Public Use
  Company Number: None

PATIENT
  Age: 29 Year
  Sex: Female
  Weight: 65.77 kg

DRUGS (2)
  1. HYDROCODONE BITARTRATE AND HOMATROPINE METHYLBROMIDE [Suspect]
     Active Substance: HOMATROPINE METHYLBROMIDE\HYDROCODONE BITARTRATE
     Indication: COUGH
     Dates: start: 20141121, end: 20141127
  2. HYDROCODONE BITARTRATE AND HOMATROPINE METHYLBROMIDE [Suspect]
     Active Substance: HOMATROPINE METHYLBROMIDE\HYDROCODONE BITARTRATE
     Indication: NASOPHARYNGITIS
     Dates: start: 20141121, end: 20141127

REACTIONS (2)
  - Unevaluable event [None]
  - Skin discolouration [None]

NARRATIVE: CASE EVENT DATE: 20141122
